FAERS Safety Report 10094814 (Version 1)
Quarter: 2014Q2

REPORT INFORMATION
  Report Type: Spontaneous
  Country: US (occurrence: US)
  Receive Date: 20140422
  Receipt Date: 20140422
  Transmission Date: 20141212
  Serious: No
  Sender: FDA-Public Use
  Company Number: US-PFIZER INC-2014108158

PATIENT
  Age: 75 Year
  Sex: Female

DRUGS (3)
  1. SUTENT [Suspect]
     Indication: RENAL CANCER
     Dosage: 50 MG, UNK
  2. OMEGA-3 KRILL OIL [Concomitant]
     Dosage: UNK
  3. CALCIUM CITRATE/COLECALCIFEROL [Concomitant]
     Dosage: UNK

REACTIONS (8)
  - Abdominal discomfort [Unknown]
  - Dyspepsia [Unknown]
  - Dry mouth [Unknown]
  - Oral pain [Unknown]
  - Fatigue [Unknown]
  - Confusional state [Unknown]
  - Pain in extremity [Unknown]
  - Eye swelling [Unknown]
